FAERS Safety Report 10086002 (Version 2)
Quarter: 2014Q2

REPORT INFORMATION
  Report Type: Spontaneous
  Country: CH (occurrence: CH)
  Receive Date: 20140418
  Receipt Date: 20140418
  Transmission Date: 20141212
  Serious: Yes (Other)
  Sender: FDA-Public Use
  Company Number: CH-CELGENEUS-151-21880-14024135

PATIENT
  Age: 56 Year
  Sex: Male
  Weight: 66 kg

DRUGS (15)
  1. REVLIMID [Suspect]
     Indication: PLASMA CELL MYELOMA
     Route: 048
     Dates: start: 200904, end: 200907
  2. REVLIMID [Suspect]
     Dosage: 10 MILLIGRAM
     Route: 048
     Dates: start: 20131210, end: 20140106
  3. MELPHALAN [Concomitant]
     Indication: PLASMA CELL MYELOMA
     Route: 065
  4. MELPHALAN [Concomitant]
     Route: 065
     Dates: start: 200904, end: 200907
  5. PREDNISONE [Concomitant]
     Indication: PLASMA CELL MYELOMA
     Route: 065
     Dates: start: 200904, end: 200907
  6. DEXAMETHASONE [Concomitant]
     Indication: PLASMA CELL MYELOMA
     Route: 065
     Dates: start: 20040817, end: 20041206
  7. DEXAMETHASONE [Concomitant]
     Dosage: 20 MILLIGRAM
     Route: 048
     Dates: start: 20131210, end: 20131211
  8. DEXAMETHASONE [Concomitant]
     Route: 065
     Dates: start: 201002
  9. BENDAMUSTINE [Concomitant]
     Indication: CHEMOTHERAPY
     Dosage: 125 MILLIGRAM
     Route: 041
     Dates: start: 20131210, end: 20131211
  10. ALLOPURINOL [Concomitant]
     Indication: BLOOD URIC ACID
     Dosage: 300 MILLIGRAM
     Route: 048
     Dates: start: 20131210
  11. ASPIRINE [Concomitant]
     Indication: THROMBOSIS PROPHYLAXIS
     Route: 048
     Dates: start: 20131210
  12. ALCACYL [Concomitant]
     Indication: HEADACHE
     Route: 065
  13. VELCADE [Concomitant]
     Indication: PLASMA CELL MYELOMA
     Route: 065
     Dates: start: 200801, end: 200802
  14. VELCADE [Concomitant]
     Route: 065
     Dates: start: 201002
  15. VELCADE [Concomitant]
     Route: 065
     Dates: start: 20140107

REACTIONS (3)
  - Bone marrow toxicity [Unknown]
  - Plasma cell myeloma [Unknown]
  - Neutropenia [Recovered/Resolved]
